FAERS Safety Report 25282510 (Version 1)
Quarter: 2025Q2

REPORT INFORMATION
  Report Type: Spontaneous
  Country: US (occurrence: US)
  Receive Date: 20250508
  Receipt Date: 20250508
  Transmission Date: 20250717
  Serious: Yes (Other)
  Sender: AUROBINDO
  Company Number: US-AUROBINDO-AUR-APL-2025-023293

PATIENT
  Age: 58 Year
  Sex: Female

DRUGS (3)
  1. PREDNISONE [Suspect]
     Active Substance: PREDNISONE
     Indication: Graft versus host disease
     Route: 065
  2. TRIAMCINOLONE [Suspect]
     Active Substance: TRIAMCINOLONE
     Indication: Rash
     Route: 061
  3. ALUMINUM HYDROXIDE\DIMETHICONE\DIPHENHYDRAMINE\LIDOCAINE\MAGNESIUM HYD [Suspect]
     Active Substance: ALUMINUM HYDROXIDE\DIMETHICONE\DIPHENHYDRAMINE\LIDOCAINE\MAGNESIUM HYDROXIDE
     Indication: Mucosal inflammation
     Route: 065

REACTIONS (1)
  - Drug ineffective [Unknown]
